FAERS Safety Report 8790431 (Version 1)
Quarter: 2012Q4

REPORT INFORMATION
  Report Type: Spontaneous
  Country: US (occurrence: None)
  Receive Date: 20120911
  Receipt Date: 20120911
  Transmission Date: 20130627
  Serious: Yes (Other)
  Sender: FDA-Public Use
  Company Number: None

PATIENT
  Age: 71 Year
  Sex: Female
  Weight: 58.06 kg

DRUGS (1)
  1. ZICAM COLD REMEDY [Suspect]
     Indication: COLD
     Dosage: 1 melt 1 po
     Route: 048
     Dates: start: 20120908, end: 20120911

REACTIONS (3)
  - Dyspepsia [None]
  - Feeling hot [None]
  - Diarrhoea [None]
